FAERS Safety Report 5498600-3 (Version None)
Quarter: 2007Q4

REPORT INFORMATION
  Report Type: 
  Country: None (occurrence: None)
  Receive Date: 20071025
  Receipt Date: 20071025
  Transmission Date: 20080405
  Serious: No
  Sender: FDA-Public Use
  Company Number: None

PATIENT
  Age: 76 Year
  Sex: Male

DRUGS (1)
  1. SERTRALINE [Suspect]
     Dosage: 50MG  EVERY DAY  PO
     Route: 048
     Dates: start: 20070809, end: 20071001

REACTIONS (1)
  - HYPONATRAEMIA [None]
